FAERS Safety Report 13508762 (Version 4)
Quarter: 2017Q3

REPORT INFORMATION
  Report Type: Spontaneous
  Country: US (occurrence: US)
  Receive Date: 20170503
  Receipt Date: 20170908
  Transmission Date: 20171127
  Serious: Yes (Other)
  Sender: FDA-Public Use
  Company Number: US-GLAXOSMITHKLINE-US2017063224

PATIENT
  Age: 62 Year
  Sex: Female

DRUGS (24)
  1. LORATADINE. [Concomitant]
     Active Substance: LORATADINE
  2. ADVAIR HFA [Concomitant]
     Active Substance: FLUTICASONE PROPIONATE\SALMETEROL XINAFOATE
  3. FISH OIL [Concomitant]
     Active Substance: FISH OIL
  4. SYSTANE BALANCE [Concomitant]
     Active Substance: PROPYLENE GLYCOL
  5. MAGNESIUM OXIDE. [Concomitant]
     Active Substance: MAGNESIUM OXIDE
  6. CYTOMEL [Concomitant]
     Active Substance: LIOTHYRONINE SODIUM
  7. NUCALA [Suspect]
     Active Substance: MEPOLIZUMAB
     Indication: ASTHMA
     Dosage: 100 MG, CYC
     Route: 058
     Dates: start: 201703
  8. SYNTHROID [Concomitant]
     Active Substance: LEVOTHYROXINE SODIUM
  9. GEMFIBROZIL. [Concomitant]
     Active Substance: GEMFIBROZIL
  10. PAZEO [Concomitant]
     Active Substance: OLOPATADINE HYDROCHLORIDE
  11. ACTONEL [Concomitant]
     Active Substance: RISEDRONATE SODIUM
  12. FOLIC ACID. [Concomitant]
     Active Substance: FOLIC ACID
  13. ZYFLO [Concomitant]
     Active Substance: ZILEUTON
  14. CRESTOR [Concomitant]
     Active Substance: ROSUVASTATIN CALCIUM
  15. VITAMIN B-6 [Concomitant]
     Active Substance: PYRIDOXINE
  16. VITAMIN B12 [Concomitant]
     Active Substance: CYANOCOBALAMIN
  17. INCRUSE ELLIPTA [Concomitant]
     Active Substance: UMECLIDINIUM BROMIDE
  18. NEXIUM [Concomitant]
     Active Substance: ESOMEPRAZOLE MAGNESIUM
  19. ATIVAN [Concomitant]
     Active Substance: LORAZEPAM
  20. HYDROCORTISONE. [Concomitant]
     Active Substance: HYDROCORTISONE
  21. CELEBREX [Concomitant]
     Active Substance: CELECOXIB
  22. QVAR [Concomitant]
     Active Substance: BECLOMETHASONE DIPROPIONATE
  23. XOPENEX [Concomitant]
     Active Substance: LEVALBUTEROL HYDROCHLORIDE
  24. MUCINEX [Concomitant]
     Active Substance: GUAIFENESIN

REACTIONS (6)
  - Arrhythmia [Unknown]
  - Incorrect route of drug administration [Unknown]
  - Therapeutic response decreased [Unknown]
  - Blood pressure increased [Recovered/Resolved]
  - Wrong technique in product usage process [Unknown]
  - Injection site mass [Unknown]

NARRATIVE: CASE EVENT DATE: 20170710
